FAERS Safety Report 9260397 (Version 2)
Quarter: 2013Q2

REPORT INFORMATION
  Report Type: Report from Study
  Country: CA (occurrence: CA)
  Receive Date: 20130429
  Receipt Date: 20130503
  Transmission Date: 20140414
  Serious: Yes (Hospitalization, Disabling)
  Sender: FDA-Public Use
  Company Number: PHHY2013CA041489

PATIENT
  Age: 70 Year
  Sex: Female

DRUGS (6)
  1. ACLASTA [Suspect]
     Indication: OSTEOPOROSIS
     Dosage: UNK UKN, UNK
     Route: 042
     Dates: start: 20110512
  2. ACLASTA [Suspect]
     Dosage: UNK UKN, UNK
     Route: 042
     Dates: start: 20120508
  3. ZANTAC [Concomitant]
     Dosage: 75 MG, BID
  4. DITROPAN [Concomitant]
     Dosage: 2.5 MG, BID
  5. SYNTHROID [Concomitant]
     Dosage: UNK UKN, UNK
  6. CALCITONIN [Concomitant]
     Dosage: UNK UKN, UNK

REACTIONS (4)
  - Cerebrovascular accident [Not Recovered/Not Resolved]
  - Cerebral haemorrhage [Unknown]
  - Sensory loss [Unknown]
  - Aphasia [Unknown]
